FAERS Safety Report 15771109 (Version 1)
Quarter: 2018Q4

REPORT INFORMATION
  Report Type: Spontaneous
  Country: US (occurrence: US)
  Receive Date: 20181228
  Receipt Date: 20181228
  Transmission Date: 20190205
  Serious: No
  Sender: FDA-Public Use
  Company Number: US-INDIVIOR LIMITED-INDV-114273-2018

PATIENT
  Age: 30 Year
  Sex: Male

DRUGS (3)
  1. BUPRENORPHINE TABLET [Suspect]
     Active Substance: BUPRENORPHINE
     Indication: PRODUCT USED FOR UNKNOWN INDICATION
     Dosage: UNK
     Route: 065
  2. BUPRENORPHINE TABLET [Suspect]
     Active Substance: BUPRENORPHINE
     Dosage: UNK
     Route: 065
     Dates: start: 2018
  3. SUBLOCADE [Suspect]
     Active Substance: BUPRENORPHINE
     Indication: PRODUCT USED FOR UNKNOWN INDICATION
     Dosage: 300 MG, QMO (TWO DOSES)
     Route: 065
     Dates: start: 2018

REACTIONS (3)
  - Injection site pain [Recovered/Resolved]
  - Drug level decreased [Unknown]
  - Drug withdrawal syndrome [Not Recovered/Not Resolved]

NARRATIVE: CASE EVENT DATE: 2018
